FAERS Safety Report 16714204 (Version 17)
Quarter: 2021Q4

REPORT INFORMATION
  Report Type: Report from Study
  Country: CN (occurrence: None)
  Receive Date: 20190819
  Receipt Date: 20211230
  Transmission Date: 20220303
  Serious: Yes (Hospitalization)
  Sender: FDA-Public Use
  Company Number: CN-ROCHE-2372587

PATIENT
  Age: 33 Year
  Sex: Male
  Weight: 63 kg

DRUGS (44)
  1. ATEZOLIZUMAB [Suspect]
     Active Substance: ATEZOLIZUMAB
     Indication: Hepatocellular carcinoma
     Dosage: ON DAY 1 OF EACH 21 DAY CYCLE?DATE OF MOST RECENT DOSE OF ATEZOLIZUMAB (1200 MG) PRIOR TO EVENT ONSE
     Route: 042
     Dates: start: 20190308
  2. BEVACIZUMAB [Suspect]
     Active Substance: BEVACIZUMAB
     Indication: Hepatocellular carcinoma
     Dosage: ON DAY 1 OF EACH 21 DAY CYCLE?DATE OF MOST RECENT DOSE OF BEVACIZUMAB (1080 MG) PRIOR TO EVENT ONSET
     Route: 042
     Dates: start: 20190308
  3. ENTECAVIR [Concomitant]
     Active Substance: ENTECAVIR
     Indication: Hepatitis B
     Dates: start: 201803, end: 20191015
  4. BICYCLOL [Concomitant]
     Active Substance: BICYCLOL
     Indication: Hepatitis B
     Dosage: PIECE
     Dates: start: 201803
  5. DIETARY SUPPLEMENT\HERBALS\MILK THISTLE [Concomitant]
     Active Substance: DIETARY SUPPLEMENT\HERBALS\MILK THISTLE
     Indication: Hepatic cirrhosis
     Dates: start: 20190419
  6. MAGNESIUM ISOGLYCYRRHIZINATE [Concomitant]
     Active Substance: MAGNESIUM ISOGLYCYRRHIZINATE
     Indication: Hepatitis viral
     Dates: start: 20190805, end: 20190812
  7. PHOSPHOLIPID [Concomitant]
     Active Substance: PHOSPHOLIPID
     Indication: Hepatic cirrhosis
     Dates: start: 20190805, end: 20190812
  8. PHOSPHOLIPID [Concomitant]
     Active Substance: PHOSPHOLIPID
     Indication: Hepatitis B
     Dates: start: 20191009, end: 20191011
  9. ADEMETIONINE BUTANEDISULFONATE [Concomitant]
     Active Substance: ADEMETIONINE BUTANEDISULFONATE
     Indication: Hepatic cirrhosis
     Dates: start: 20190805, end: 20190812
  10. GLUTATHIONE [Concomitant]
     Active Substance: GLUTATHIONE
     Dosage: PROTECT LIVER TREATMENT
     Dates: start: 20191008, end: 20191011
  11. GLUTATHIONE [Concomitant]
     Active Substance: GLUTATHIONE
     Dosage: PROTECT LIVER TREATMENT
     Dates: start: 20191107, end: 20191109
  12. MAGNESIUM ISOGLYCYRRHIZINATE [Concomitant]
     Active Substance: MAGNESIUM ISOGLYCYRRHIZINATE
     Indication: Hepatitis
     Dates: start: 20191008, end: 20191011
  13. MAGNESIUM ISOGLYCYRRHIZINATE [Concomitant]
     Active Substance: MAGNESIUM ISOGLYCYRRHIZINATE
     Dates: start: 20191107, end: 20191109
  14. INSULIN NOS [Concomitant]
     Active Substance: INSULIN NOS
     Indication: Diabetes mellitus
     Dates: start: 20191008, end: 20191011
  15. INSULIN NOS [Concomitant]
     Active Substance: INSULIN NOS
     Dates: start: 20191107, end: 20191109
  16. SODIUM ESCINATE [Concomitant]
     Active Substance: SODIUM ESCINATE
     Indication: Peripheral venous disease
     Dosage: VENOUS REFLUX DISORDER
     Dates: start: 20191008, end: 20191011
  17. OXYCODONE HYDROCHLORIDE [Concomitant]
     Active Substance: OXYCODONE HYDROCHLORIDE
     Indication: Pain
     Dates: start: 20191009, end: 20191011
  18. ASPIRIN [Concomitant]
     Active Substance: ASPIRIN
     Dosage: REDUCES THE RISK OF A HEART ATTACK
     Dates: start: 20191009, end: 20191011
  19. PANTOPRAZOLE SODIUM [Concomitant]
     Active Substance: PANTOPRAZOLE SODIUM
     Indication: Gastrointestinal disorder
     Dates: start: 20191108, end: 20191108
  20. TROPISETRON [Concomitant]
     Active Substance: TROPISETRON
     Dosage: PREVENT NAUSEA AND VOMITING
     Dates: start: 20191008, end: 20191008
  21. TROPISETRON [Concomitant]
     Active Substance: TROPISETRON
     Dosage: PREVENT NAUSEA AND VOMITING
     Dates: start: 20191108, end: 20191108
  22. TENOFOVIR DISOPROXIL FUMARATE [Concomitant]
     Active Substance: TENOFOVIR DISOPROXIL FUMARATE
     Indication: Hepatitis
     Dates: start: 20191011
  23. OMEPRAZOLE MAGNESIUM [Concomitant]
     Active Substance: OMEPRAZOLE MAGNESIUM
     Dosage: DISEASE OF THE STOMACH
     Dates: start: 20191011
  24. MORPHINE HYDROCHLORIDE [Concomitant]
     Active Substance: MORPHINE HYDROCHLORIDE
     Indication: Pain
     Dates: start: 20191108, end: 20191108
  25. PREDNISONE ACETATE [Concomitant]
     Active Substance: PREDNISONE ACETATE
     Route: 048
     Dates: start: 20191008, end: 20191130
  26. PREDNISONE ACETATE [Concomitant]
     Active Substance: PREDNISONE ACETATE
     Route: 048
     Dates: start: 20190806, end: 20190809
  27. MANNITOL [Concomitant]
     Active Substance: MANNITOL
     Dates: start: 20191111, end: 20191117
  28. OMEPRAZOLE SODIUM [Concomitant]
     Active Substance: OMEPRAZOLE SODIUM
     Dates: start: 20191111, end: 20191117
  29. GLUTATHIONE [Concomitant]
     Active Substance: GLUTATHIONE
     Dates: start: 20191111, end: 20191117
  30. URSODIOL [Concomitant]
     Active Substance: URSODIOL
     Indication: Hepatic cirrhosis
     Dates: start: 20190805
  31. CODEINE PHOSPHATE [Concomitant]
     Active Substance: CODEINE PHOSPHATE
     Dates: start: 20191115, end: 20191115
  32. AMBROXOL HYDROCHLORIDE [Concomitant]
     Active Substance: AMBROXOL HYDROCHLORIDE
     Dates: start: 20191111, end: 20191117
  33. GINKGO [Concomitant]
     Active Substance: GINKGO
     Dates: start: 20191111, end: 20191111
  34. POTASSIUM CHLORIDE [Concomitant]
     Active Substance: POTASSIUM CHLORIDE
     Dates: start: 20191114, end: 20191117
  35. EDARAVONE [Concomitant]
     Active Substance: EDARAVONE
     Dates: start: 20191114, end: 20191115
  36. DEXAMETHASONE SODIUM PHOSPHATE [Concomitant]
     Active Substance: DEXAMETHASONE SODIUM PHOSPHATE
     Route: 042
     Dates: start: 20191111, end: 20191111
  37. EDARAVONE [Concomitant]
     Active Substance: EDARAVONE
     Dates: start: 20191114, end: 20191114
  38. INDOMETHACIN [Concomitant]
     Active Substance: INDOMETHACIN
     Dates: start: 20191111, end: 20191111
  39. CALCIUM GLUCONATE [Concomitant]
     Active Substance: CALCIUM GLUCONATE
     Dates: start: 20191111, end: 20191111
  40. CALCIUM GLUCONATE [Concomitant]
     Active Substance: CALCIUM GLUCONATE
     Dates: start: 20191009, end: 20191009
  41. PRILOSEC [Concomitant]
     Active Substance: OMEPRAZOLE MAGNESIUM
     Dates: start: 20191111, end: 20191117
  42. FUROSEMIDE [Concomitant]
     Active Substance: FUROSEMIDE
     Indication: Hepatic cirrhosis
     Dates: start: 20191108, end: 20191108
  43. FUROSEMIDE [Concomitant]
     Active Substance: FUROSEMIDE
     Dates: start: 20191010, end: 20191010
  44. FUROSEMIDE [Concomitant]
     Active Substance: FUROSEMIDE
     Dates: start: 20191008, end: 20191008

REACTIONS (3)
  - Blood bilirubin increased [Recovered/Resolved]
  - Cerebral infarction [Recovered/Resolved]
  - Aspartate aminotransferase increased [Recovered/Resolved]

NARRATIVE: CASE EVENT DATE: 20190801
